FAERS Safety Report 10329365 (Version 3)
Quarter: 2014Q3

REPORT INFORMATION
  Report Type: Report from Study
  Country: US (occurrence: US)
  Receive Date: 20140721
  Receipt Date: 20140826
  Transmission Date: 20150326
  Serious: Yes (Other)
  Sender: FDA-Public Use
  Company Number: PHEH2014US014168

PATIENT
  Sex: Female

DRUGS (24)
  1. LORAZEPAM. [Concomitant]
     Active Substance: LORAZEPAM
  2. NAMENDA [Concomitant]
     Active Substance: MEMANTINE HYDROCHLORIDE
  3. VITAMIN D [Concomitant]
     Active Substance: CHOLECALCIFEROL
  4. LAMOTRIGINE. [Concomitant]
     Active Substance: LAMOTRIGINE
  5. LEVOTHYROXINE [Concomitant]
     Active Substance: LEVOTHYROXINE
  6. SEROQUEL [Concomitant]
     Active Substance: QUETIAPINE FUMARATE
  7. GILENYA [Suspect]
     Active Substance: FINGOLIMOD HYDROCHLORIDE
     Dosage: 0.5 MG, QD
     Route: 048
  8. ABILIFY [Concomitant]
     Active Substance: ARIPIPRAZOLE
  9. ASPIRIN. [Concomitant]
     Active Substance: ASPIRIN
  10. FAMOTIDINE. [Concomitant]
     Active Substance: FAMOTIDINE
  11. METHOCARBAMOL. [Concomitant]
     Active Substance: METHOCARBAMOL
  12. SUMATRIPTAN SUCCINATE. [Concomitant]
     Active Substance: SUMATRIPTAN SUCCINATE
  13. DIVALPROEX SODIUM. [Concomitant]
     Active Substance: DIVALPROEX SODIUM
  14. EPITOL [Concomitant]
     Active Substance: CARBAMAZEPINE
  15. LISINOPRIL. [Concomitant]
     Active Substance: LISINOPRIL
  16. NEXIUM [Concomitant]
     Active Substance: ESOMEPRAZOLE MAGNESIUM
  17. HYDROCODONE/ACETAMINOPHEN [Concomitant]
     Active Substance: ACETAMINOPHEN\HYDROCODONE
  18. ACYCLOVIR. [Concomitant]
     Active Substance: ACYCLOVIR
  19. GILENYA [Suspect]
     Active Substance: FINGOLIMOD HYDROCHLORIDE
     Indication: MULTIPLE SCLEROSIS
     Dosage: 0.5 MG, QD
     Route: 048
  20. DONEPEZIL [Concomitant]
     Active Substance: DONEPEZIL
  21. VESICARE [Concomitant]
     Active Substance: SOLIFENACIN SUCCINATE
  22. GABAPENTIN. [Concomitant]
     Active Substance: GABAPENTIN
  23. AMITRIPTYLINE [Concomitant]
     Active Substance: AMITRIPTYLINE
  24. TEMAZEPAM. [Concomitant]
     Active Substance: TEMAZEPAM

REACTIONS (14)
  - Stress [Unknown]
  - Clavicle fracture [Unknown]
  - Fracture [Unknown]
  - Headache [Unknown]
  - Fatigue [Unknown]
  - Road traffic accident [Unknown]
  - Ataxia [Unknown]
  - Muscular weakness [Unknown]
  - Lethargy [Unknown]
  - Rotator cuff syndrome [Unknown]
  - Memory impairment [Unknown]
  - Cognitive disorder [Unknown]
  - Fall [Unknown]
  - Gait disturbance [Unknown]
